FAERS Safety Report 24827698 (Version 1)
Quarter: 2025Q1

REPORT INFORMATION
  Report Type: Spontaneous
  Country: FR (occurrence: FR)
  Receive Date: 20250109
  Receipt Date: 20250109
  Transmission Date: 20250409
  Serious: Yes (Other)
  Sender: JAZZ
  Company Number: FR-PHARMAMAR-2024PM000977

PATIENT

DRUGS (1)
  1. ZEPZELCA [Suspect]
     Active Substance: LURBINECTEDIN
     Indication: Small cell lung cancer
     Route: 042
     Dates: start: 20240808, end: 20241206

REACTIONS (1)
  - Neutropenia [Unknown]
